FAERS Safety Report 9925885 (Version 2)
Quarter: 2014Q2

REPORT INFORMATION
  Report Type: Spontaneous
  Country: GB (occurrence: GB)
  Receive Date: 20140226
  Receipt Date: 20140602
  Transmission Date: 20141212
  Serious: Yes (Other)
  Sender: FDA-Public Use
  Company Number: GB-TEVA-463470ISR

PATIENT
  Age: 58 Year
  Sex: Male

DRUGS (7)
  1. WARFARIN [Suspect]
     Indication: CONGESTIVE CARDIOMYOPATHY
     Route: 048
  2. LUTEIN [Interacting]
     Indication: MACULAR DEGENERATION
     Dosage: LUTEIN AS RECOMMENDED BY THE OPTICIAN.
     Route: 048
     Dates: start: 20131102
  3. SALBUTAMOL [Concomitant]
  4. RAMIPRIL [Concomitant]
     Dosage: 10 MILLIGRAM DAILY;
  5. BISOPROLOL [Concomitant]
     Dosage: 10 MILLIGRAM DAILY;
  6. SIMVASTATIN [Concomitant]
     Dosage: 40 MILLIGRAM DAILY;
  7. METFORMIN [Concomitant]
     Dosage: 1500 MILLIGRAM DAILY;

REACTIONS (2)
  - International normalised ratio increased [Recovered/Resolved]
  - Drug interaction [Unknown]
